FAERS Safety Report 10658666 (Version 1)
Quarter: 2014Q4

REPORT INFORMATION
  Report Type: Spontaneous
  Country: None (occurrence: None)
  Receive Date: 20141216
  Receipt Date: 20141216
  Transmission Date: 20150529
  Serious: Yes (Hospitalization)
  Sender: FDA-Public Use
  Company Number: None

PATIENT
  Age: 85 Year
  Sex: Female
  Weight: 79.38 kg

DRUGS (3)
  1. XARELTO [Suspect]
     Active Substance: RIVAROXABAN
     Indication: ATRIAL THROMBOSIS
     Dosage: 1 TABLET QD ORAL
     Route: 048
  2. WARFARIN [Concomitant]
     Active Substance: WARFARIN
  3. RIVAROXABAN [Concomitant]
     Active Substance: RIVAROXABAN

REACTIONS (2)
  - Gastrointestinal haemorrhage [None]
  - Product substitution issue [None]

NARRATIVE: CASE EVENT DATE: 20141128
